FAERS Safety Report 24564642 (Version 1)
Quarter: 2024Q4

REPORT INFORMATION
  Report Type: Spontaneous
  Country: US (occurrence: US)
  Receive Date: 20241030
  Receipt Date: 20241030
  Transmission Date: 20250114
  Serious: Yes (Death, Hospitalization, Other)
  Sender: APOTEX
  Company Number: US-APOTEX-2024AP017025

PATIENT
  Age: 14 Year
  Sex: Female

DRUGS (1)
  1. DIPHENHYDRAMINE [Suspect]
     Active Substance: DIPHENHYDRAMINE
     Indication: Product used for unknown indication
     Dosage: UNK
     Route: 065

REACTIONS (10)
  - Coma [Fatal]
  - Depressed level of consciousness [Fatal]
  - Anticholinergic syndrome [Fatal]
  - Respiratory depression [Fatal]
  - Seizure [Fatal]
  - Bradycardia [Fatal]
  - Bradypnoea [Fatal]
  - Metabolic acidosis [Fatal]
  - Leukocytosis [Fatal]
  - Toxicity to various agents [Fatal]
